FAERS Safety Report 22520674 (Version 1)
Quarter: 2023Q2

REPORT INFORMATION
  Report Type: Spontaneous
  Country: US (occurrence: None)
  Receive Date: 20230604
  Receipt Date: 20230604
  Transmission Date: 20230722
  Serious: Yes (Disabling)
  Sender: FDA-Public Use
  Company Number: None

PATIENT
  Sex: Female

DRUGS (8)
  1. OCREVUS [Suspect]
     Active Substance: OCRELIZUMAB
     Indication: Multiple sclerosis
     Dates: start: 20181001, end: 20200401
  2. AMPYRA [Concomitant]
     Active Substance: DALFAMPRIDINE
  3. walker [Concomitant]
  4. wheel chair [Concomitant]
  5. scooter [Concomitant]
  6. D3 w/ k [Concomitant]
  7. VITAMIN B COMPLEX [Concomitant]
     Active Substance: CYANOCOBALAMIN\DEXPANTHENOL\NIACINAMIDE\PYRIDOXINE HYDROCHLORIDE\RIBOFLAVIN 5^-PHOSPHATE SODIUM\THIA
  8. HDA [Concomitant]

REACTIONS (14)
  - Diplegia [None]
  - Infusion related reaction [None]
  - Bladder spasm [None]
  - Urinary tract infection [None]
  - Brain fog [None]
  - Balance disorder [None]
  - Headache [None]
  - Pruritus [None]
  - Pruritus [None]
  - Alopecia [None]
  - Weight increased [None]
  - Peripheral swelling [None]
  - Oedema peripheral [None]
  - Arthralgia [None]

NARRATIVE: CASE EVENT DATE: 20181001
